FAERS Safety Report 10381676 (Version 1)
Quarter: 2014Q1

REPORT INFORMATION
  Report Type: Spontaneous
  Country: US (occurrence: None)
  Receive Date: 20140306
  Receipt Date: 20140306
  Transmission Date: 20141002
  Serious: Yes (Other)
  Sender: FDA-Public Use
  Company Number: 163-21880-13090270

PATIENT
  Age: 76 Year
  Sex: Male
  Weight: 93 kg

DRUGS (23)
  1. REVLIMID [Suspect]
     Indication: PLASMA CELL MYELOMA
     Dosage: 15 MG, 21 IN 21 D
     Route: 048
     Dates: start: 20110729
  2. WARFARIN SODIUM [Concomitant]
  3. ZOLPIDEM TARTRATE [Concomitant]
  4. DEXAMETHASONE [Concomitant]
  5. CALTRATE + VITAMIN D (LEKOVIT CA) [Concomitant]
  6. AMLODIPINE BESYLATE (AMLODIPINE BESILATE) [Concomitant]
  7. FUROSEMIDE [Concomitant]
  8. METFORMIN HCL (METFORMIN HYDROCHLORIDE) [Concomitant]
  9. PRAVASTATIN SODIUM [Concomitant]
  10. CARVEDILOL [Concomitant]
  11. OMEPRAZOLE [Concomitant]
  12. LISINOPRIL [Concomitant]
  13. FERROUS SULFATE [Concomitant]
  14. EPLERENONE [Concomitant]
  15. MVI [Concomitant]
  16. OXYBUTYNIN [Concomitant]
  17. GARLIC [Concomitant]
  18. COENZYME Q10 (UBIDECARENONE) [Concomitant]
  19. BEE POLLEN [Concomitant]
  20. FISH OIL [Concomitant]
  21. PROLIA (DENOSUMAB) [Concomitant]
  22. VITAMIN D3 (COLECALCIFEROL) [Concomitant]
  23. VELCADE (BORTEZOMIB) [Concomitant]

REACTIONS (7)
  - Cataract [None]
  - Protein total increased [None]
  - Therapeutic response decreased [None]
  - Weight fluctuation [None]
  - Platelet count decreased [None]
  - Dysgeusia [None]
  - Decreased appetite [None]
